FAERS Safety Report 7311747-1 (Version None)
Quarter: 2011Q1

REPORT INFORMATION
  Report Type: 
  Country: None (occurrence: None)
  Receive Date: 20110215
  Receipt Date: 20110215
  Transmission Date: 20110831
  Serious: Yes (Hospitalization)
  Sender: FDA-Public Use
  Company Number: None

PATIENT
  Age: 74 Year
  Sex: Female
  Weight: 71.8 kg

DRUGS (8)
  1. SOTALOL HYDROCHLORIDE [Suspect]
     Indication: ATRIAL FIBRILLATION
     Dosage: 80MG BID PO RECENT
     Route: 048
  2. WARFARIN [Concomitant]
  3. VENTOLIN [Concomitant]
  4. ADVAIR DISKUS 100/50 [Concomitant]
  5. LEXAPRO [Concomitant]
  6. LISINOPRIL [Concomitant]
  7. HYDROCHLOROTHIAZIDE [Concomitant]
  8. XANAX [Concomitant]

REACTIONS (3)
  - DRUG HYPERSENSITIVITY [None]
  - TROPONIN I INCREASED [None]
  - RESPIRATORY FAILURE [None]
